FAERS Safety Report 15128815 (Version 9)
Quarter: 2020Q1

REPORT INFORMATION
  Report Type: Report from Study
  Country: DE (occurrence: DE)
  Receive Date: 20180711
  Receipt Date: 20200221
  Transmission Date: 20200409
  Serious: Yes (Other)
  Sender: FDA-Public Use
  Company Number: DE-ROCHE-2152497

PATIENT
  Age: 23 Year
  Sex: Female

DRUGS (4)
  1. OCREVUS [Suspect]
     Active Substance: OCRELIZUMAB
     Indication: RELAPSING-REMITTING MULTIPLE SCLEROSIS
     Route: 042
     Dates: start: 20180703
  2. OCREVUS [Suspect]
     Active Substance: OCRELIZUMAB
     Route: 042
     Dates: start: 20190124
  3. EZICLEN [Suspect]
     Active Substance: MAGNESIUM SULFATE\POTASSIUM SULFATE\SODIUM SULFATE
     Indication: PREMEDICATION
     Route: 065
     Dates: start: 20180927
  4. DEKRISTOL [Concomitant]
     Active Substance: CHOLECALCIFEROL
     Route: 065

REACTIONS (24)
  - Thyroid mass [Not Recovered/Not Resolved]
  - Impaired healing [Unknown]
  - Fatigue [Recovered/Resolved]
  - Asthenia [Recovered/Resolved]
  - Circulatory collapse [Recovered/Resolved]
  - Drug intolerance [Unknown]
  - Hypotension [Recovered/Resolved]
  - Nightmare [Not Recovered/Not Resolved]
  - Blood potassium abnormal [Recovering/Resolving]
  - Bronchitis [Recovering/Resolving]
  - Influenza [Recovering/Resolving]
  - Nasopharyngitis [Recovered/Resolved]
  - Respiratory distress [Recovered/Resolved]
  - Long QT syndrome [Recovering/Resolving]
  - Fatigue [Recovered/Resolved]
  - Multiple sclerosis relapse [Not Recovered/Not Resolved]
  - Multiple sclerosis relapse [Recovering/Resolving]
  - Headache [Not Recovered/Not Resolved]
  - Abnormal dreams [Not Recovered/Not Resolved]
  - Multiple sclerosis [Recovered/Resolved]
  - Pharyngeal swelling [Recovered/Resolved]
  - Therapeutic product effect decreased [Unknown]
  - Oropharyngeal pain [Recovered/Resolved]
  - Blood glucose decreased [Recovered/Resolved]

NARRATIVE: CASE EVENT DATE: 20180703
